FAERS Safety Report 6856320-4 (Version None)
Quarter: 2010Q3

REPORT INFORMATION
  Report Type: 
  Country: None (occurrence: None)
  Receive Date: 20100719
  Receipt Date: 20100719
  Transmission Date: 20110219
  Serious: Yes (Hospitalization)
  Sender: FDA-Public Use
  Company Number: PHHO2010IT02858

PATIENT
  Sex: Female
  Weight: 50 kg

DRUGS (2)
  1. PLACEBO COMP-PLA+ [Suspect]
     Indication: NEUROENDOCRINE CARCINOMA
     Dosage: PLACEBO
     Route: 048
     Dates: start: 20080715, end: 20081104
  2. RAD001C [Suspect]
     Indication: NEUROENDOCRINE CARCINOMA
     Dosage: 10 MG, QD
     Route: 048
     Dates: start: 20081111

REACTIONS (1)
  - GENERAL PHYSICAL HEALTH DETERIORATION [None]
